FAERS Safety Report 10234865 (Version 1)
Quarter: 2014Q2

REPORT INFORMATION
  Report Type: Spontaneous
  Country: BR (occurrence: BR)
  Receive Date: 20140613
  Receipt Date: 20140613
  Transmission Date: 20141212
  Serious: Yes (Other)
  Sender: FDA-Public Use
  Company Number: BR-ABBVIE-14K-020-1247660-00

PATIENT
  Age: 31 Year
  Sex: Male

DRUGS (2)
  1. DEPAKOTE [Suspect]
     Indication: CONVULSION
     Route: 048
     Dates: start: 201404
  2. DEPAKOTE [Suspect]
     Route: 048
     Dates: start: 201404

REACTIONS (4)
  - Product quality issue [Unknown]
  - Petit mal epilepsy [Recovered/Resolved]
  - Convulsion [Recovered/Resolved]
  - Abdominal pain upper [Recovered/Resolved]
